FAERS Safety Report 8043448 (Version 2)
Quarter: 2013Q1

REPORT INFORMATION
  Report Type: Spontaneous
  Country: FR (occurrence: FR)
  Receive Date: 20110719
  Receipt Date: 20130318
  Transmission Date: 20140127
  Serious: Yes (Hospitalization)
  Sender: FDA-Public Use
  Company Number: PHHY2011FR61451

PATIENT
  Age: 28 Year
  Sex: Female

DRUGS (4)
  1. SYNTOCINON [Suspect]
     Dosage: 2 DF, QD
     Route: 042
     Dates: start: 20091226, end: 20091226
  2. AMOXICILLIN [Suspect]
     Indication: PREMATURE RUPTURE OF MEMBRANES
     Dosage: UNK
     Route: 048
     Dates: start: 20091226, end: 20091230
  3. PERFALGAN [Suspect]
     Dosage: UNK
     Route: 042
     Dates: start: 20091226
  4. DAFALGAN [Suspect]
     Dosage: UNK
     Route: 048
     Dates: start: 20091226

REACTIONS (5)
  - Rash vesicular [Recovered/Resolved]
  - Rash maculo-papular [Recovered/Resolved]
  - Hyperthermia [Recovered/Resolved]
  - Erythema [Recovered/Resolved]
  - Eosinophilia [Recovered/Resolved]
